FAERS Safety Report 15806596 (Version 1)
Quarter: 2019Q1

REPORT INFORMATION
  Report Type: Report from Study
  Country: US (occurrence: US)
  Receive Date: 20190110
  Receipt Date: 20190110
  Transmission Date: 20190417
  Serious: Yes (Death, Hospitalization, Other)
  Sender: FDA-Public Use
  Company Number: US-BAYER-2018-200306

PATIENT
  Age: 77 Year
  Sex: Male

DRUGS (1)
  1. NEXAVAR [Suspect]
     Active Substance: SORAFENIB
     Indication: HEPATOCELLULAR CARCINOMA
     Dosage: 400 MG, BID
     Route: 048
     Dates: start: 20181020, end: 20181104

REACTIONS (16)
  - Dysgeusia [None]
  - Decreased activity [None]
  - Product dose omission [None]
  - Death [Fatal]
  - Fall [None]
  - Gastrointestinal haemorrhage [None]
  - Nausea [Not Recovered/Not Resolved]
  - Fatigue [None]
  - Weight decreased [Not Recovered/Not Resolved]
  - Feeling cold [None]
  - Decreased appetite [Not Recovered/Not Resolved]
  - Asthenia [None]
  - Diarrhoea [None]
  - Vomiting [None]
  - Pyrexia [None]
  - Intentional product use issue [None]

NARRATIVE: CASE EVENT DATE: 2018
